FAERS Safety Report 19987714 (Version 1)
Quarter: 2021Q4

REPORT INFORMATION
  Report Type: Report from Study
  Country: DE (occurrence: DE)
  Receive Date: 20211022
  Receipt Date: 20211022
  Transmission Date: 20220303
  Serious: Yes (Death, Other)
  Sender: FDA-Public Use
  Company Number: DE-UCBSA-2021049264

PATIENT

DRUGS (1)
  1. BRIVARACETAM [Suspect]
     Active Substance: BRIVARACETAM
     Indication: Epilepsy
     Dosage: UNK

REACTIONS (24)
  - Death [Fatal]
  - Seizure [Unknown]
  - Suicidal ideation [Unknown]
  - Depression [Unknown]
  - Irritability [Unknown]
  - Psychotic disorder [Unknown]
  - Anxiety [Unknown]
  - Adverse drug reaction [Unknown]
  - Confusional state [Unknown]
  - Somnolence [Unknown]
  - Dizziness [Unknown]
  - Insomnia [Unknown]
  - Nightmare [Unknown]
  - Gait disturbance [Unknown]
  - Ataxia [Unknown]
  - Aphasia [Unknown]
  - Nausea [Unknown]
  - Decreased appetite [Unknown]
  - Diarrhoea [Unknown]
  - Constipation [Unknown]
  - Pain [Unknown]
  - Hypersensitivity [Unknown]
  - Inability to afford medication [Unknown]
  - Product availability issue [Unknown]
